FAERS Safety Report 14330315 (Version 1)
Quarter: 2017Q4

REPORT INFORMATION
  Report Type: Spontaneous
  Country: AU (occurrence: AU)
  Receive Date: 20171227
  Receipt Date: 20171227
  Transmission Date: 20180321
  Serious: Yes (Congenital Anomaly)
  Sender: FDA-Public Use
  Company Number: AU-ALLERGAN-1773925US

PATIENT
  Sex: Male

DRUGS (4)
  1. FLUPHENAZINE ENANTATE [Suspect]
     Active Substance: FLUPHENAZINE ENANTHATE
     Indication: MATERNAL EXPOSURE TIMING UNSPECIFIED
     Route: 064
  2. DOXYLAMINE SUCCINATE. [Suspect]
     Active Substance: DOXYLAMINE SUCCINATE
     Indication: MATERNAL EXPOSURE TIMING UNSPECIFIED
     Route: 064
  3. DICYCLOMINE HCL - BP [Suspect]
     Active Substance: DICYCLOMINE HYDROCHLORIDE
     Indication: MATERNAL EXPOSURE TIMING UNSPECIFIED
     Route: 064
  4. PYRIDOXINE HYDROCHLORIDE. [Suspect]
     Active Substance: PYRIDOXINE HYDROCHLORIDE
     Indication: MATERNAL EXPOSURE TIMING UNSPECIFIED
     Route: 064

REACTIONS (11)
  - Skull malformation [Unknown]
  - Foetal exposure during pregnancy [Unknown]
  - Anal atresia [Unknown]
  - Rectourethral fistula [Unknown]
  - Hypertelorism of orbit [Unknown]
  - Nystagmus [Unknown]
  - Hypospadias [Unknown]
  - Penis disorder [Unknown]
  - Congenital genital malformation male [Unknown]
  - Congenital eye disorder [Unknown]
  - Cleft lip and palate [Unknown]
